FAERS Safety Report 5944708-5 (Version None)
Quarter: 2008Q4

REPORT INFORMATION
  Report Type: 
  Country: None (occurrence: None)
  Receive Date: 20081107
  Receipt Date: 20081105
  Transmission Date: 20090506
  Serious: Yes (Hospitalization)
  Sender: FDA-Public Use
  Company Number: US-BAYER-200814125BCC

PATIENT
  Age: 80 Year
  Sex: Female
  Weight: 58 kg

DRUGS (7)
  1. ALEVE [Suspect]
     Indication: BACK PAIN
     Dosage: TOTAL DAILY DOSE: 1320 MG  UNIT DOSE: 220 MG
     Dates: start: 20040101, end: 20060101
  2. ALEVE [Suspect]
  3. DIOVAN [Concomitant]
  4. ACTONEL [Concomitant]
  5. ATENOLOL [Concomitant]
  6. CRESTOR [Concomitant]
  7. NEXIUM [Concomitant]

REACTIONS (4)
  - ABDOMINAL PAIN UPPER [None]
  - FAECES DISCOLOURED [None]
  - HAEMATEMESIS [None]
  - ULCER HAEMORRHAGE [None]
